FAERS Safety Report 9126658 (Version 1)
Quarter: 2013Q1

REPORT INFORMATION
  Report Type: Spontaneous
  Country: US (occurrence: US)
  Receive Date: 20130228
  Receipt Date: 20130228
  Transmission Date: 20140127
  Serious: Yes (Other)
  Sender: FDA-Public Use
  Company Number: US-JNJFOC-20130208710

PATIENT
  Sex: 0

DRUGS (9)
  1. PALIPERIDONE [Suspect]
     Indication: BIPOLAR DISORDER
     Route: 048
  2. METHYLPHENIDATE HYDROCHLORIDE [Concomitant]
     Route: 065
  3. DEXTROAMPHETAMINE [Concomitant]
     Route: 065
  4. AMPHETAMINE SALTS [Concomitant]
     Route: 065
  5. ATOMOXETINE [Concomitant]
     Route: 065
  6. GUANFACINE [Concomitant]
     Route: 065
  7. CLONIDINE [Concomitant]
     Route: 065
  8. LORAZEPAM [Concomitant]
     Route: 065
  9. MELATONIN [Concomitant]
     Route: 065

REACTIONS (18)
  - Weight increased [Unknown]
  - Cyclothymic disorder [Unknown]
  - Infection [Unknown]
  - Grandiosity [Unknown]
  - Libido increased [Unknown]
  - Blood pressure diastolic increased [Unknown]
  - Hypersensitivity [Unknown]
  - Drug ineffective [Unknown]
  - Elevated mood [Unknown]
  - Irritability [Unknown]
  - Asthenia [Unknown]
  - Nasopharyngitis [Unknown]
  - Increased appetite [Unknown]
  - Headache [Unknown]
  - Insomnia [Unknown]
  - Tachyphrenia [Unknown]
  - Aggression [Unknown]
  - Decreased appetite [Unknown]
